FAERS Safety Report 8090398-8 (Version None)
Quarter: 2012Q1

REPORT INFORMATION
  Report Type: 
  Country: None (occurrence: None)
  Receive Date: 20120129
  Receipt Date: 20111201
  Transmission Date: 20120608
  Serious: No
  Sender: FDA-Public Use
  Company Number: US-ABBOTT-11P-163-0879769-00

PATIENT
  Age: 48 Year
  Sex: Female

DRUGS (10)
  1. LEXAPRO [Concomitant]
     Indication: ANXIETY
  2. HUMIRA [Suspect]
     Indication: CROHN'S DISEASE
     Dates: start: 20111025, end: 20111025
  3. HUMIRA [Suspect]
  4. LOMOTIL [Concomitant]
     Indication: DIARRHOEA
  5. TRAZODONE HCL [Concomitant]
     Indication: INSOMNIA
  6. LEXAPRO [Concomitant]
     Indication: DEPRESSION
  7. WELLBUTRIN [Concomitant]
     Indication: DEPRESSION
  8. HUMIRA [Suspect]
     Dates: start: 20111108, end: 20111108
  9. WELLBUTRIN [Concomitant]
     Indication: ANXIETY
  10. PRILOSEC [Concomitant]
     Indication: DYSPEPSIA

REACTIONS (6)
  - NASOPHARYNGITIS [None]
  - COUGH [None]
  - URINARY TRACT INFECTION [None]
  - RHINORRHOEA [None]
  - PRODUCTIVE COUGH [None]
  - SPUTUM DISCOLOURED [None]
